FAERS Safety Report 6426865-X (Version None)
Quarter: 2009Q4

REPORT INFORMATION
  Report Type: 
  Country: None (occurrence: None)
  Receive Date: 20091104
  Receipt Date: 20091026
  Transmission Date: 20100525
  Serious: Yes (Other)
  Sender: FDA-Public Use
  Company Number: US-BAYER-200915951BCC

PATIENT
  Sex: Female
  Weight: 61 kg

DRUGS (5)
  1. ALEVE [Suspect]
     Indication: DRUG USE FOR UNKNOWN INDICATION
     Route: 065
     Dates: end: 20060101
  2. ADVIL [Suspect]
     Indication: DRUG USE FOR UNKNOWN INDICATION
     Route: 065
     Dates: end: 20060101
  3. CELEBREX [Suspect]
     Indication: NECK INJURY
     Dosage: UNIT DOSE: 200 MG
     Route: 048
     Dates: start: 20070101
  4. CELEBREX [Suspect]
     Dosage: UNIT DOSE: 200 MG
     Route: 048
     Dates: end: 20080701
  5. PROTONIX [Concomitant]
     Indication: PROPHYLAXIS
     Dosage: THE DRUG WAS USED ALONG WITH CELEBREX
     Route: 065

REACTIONS (6)
  - DYSPNOEA [None]
  - HYPERSENSITIVITY [None]
  - ORAL DISCOMFORT [None]
  - PHARYNGEAL OEDEMA [None]
  - SWELLING FACE [None]
  - WEIGHT INCREASED [None]
